FAERS Safety Report 10371229 (Version 1)
Quarter: 2014Q3

REPORT INFORMATION
  Report Type: Spontaneous
  Country: GB (occurrence: None)
  Receive Date: 20140806
  Receipt Date: 20140806
  Transmission Date: 20150326
  Serious: Yes (Death, Other)
  Sender: FDA-Public Use
  Company Number: GB-016627

PATIENT

DRUGS (1)
  1. PROPESS [Suspect]
     Active Substance: DINOPROSTONE
     Indication: LABOUR INDUCTION
     Dosage: TOTAL
     Route: 064

REACTIONS (2)
  - Maternal drugs affecting foetus [None]
  - Foetal death [None]

NARRATIVE: CASE EVENT DATE: 20140617
